FAERS Safety Report 21218615 (Version 2)
Quarter: 2022Q3

REPORT INFORMATION
  Report Type: Spontaneous
  Country: US (occurrence: None)
  Receive Date: 20220816
  Receipt Date: 20220926
  Transmission Date: 20221027
  Serious: Yes (Other)
  Sender: FDA-Public Use
  Company Number: 2022A281314

PATIENT
  Age: 27563 Day
  Sex: Female
  Weight: 70.3 kg

DRUGS (20)
  1. BYDUREON BCISE [Suspect]
     Active Substance: EXENATIDE
     Indication: Type 2 diabetes mellitus
     Route: 058
  2. LOSARTAN [Concomitant]
     Active Substance: LOSARTAN
  3. ATORVASTATIN [Concomitant]
     Active Substance: ATORVASTATIN
     Dosage: AT BEDTIME
  4. PIOGLITAZONE [Concomitant]
     Active Substance: PIOGLITAZONE
  5. MELOXICAM [Concomitant]
     Active Substance: MELOXICAM
  6. GLIMEPIRIDE [Concomitant]
     Active Substance: GLIMEPIRIDE
  7. METFORMIN HYDROCHLORIDE [Concomitant]
     Active Substance: METFORMIN HYDROCHLORIDE
  8. COENZYME Q10 [Concomitant]
     Active Substance: DIETARY SUPPLEMENT\UBIDECARENONE
  9. VITAMIN D3 [Concomitant]
     Active Substance: CHOLECALCIFEROL
     Dosage: 5000 IU
  10. GARLIC [Concomitant]
     Active Substance: GARLIC
  11. POTASSIUM [Concomitant]
     Active Substance: POTASSIUM
     Dosage: AT BEDTIME
  12. VITAMIN E [Concomitant]
     Active Substance: .ALPHA.-TOCOPHEROL
  13. VITAMIN E [Concomitant]
     Active Substance: .ALPHA.-TOCOPHEROL
  14. ASPIRIN [Concomitant]
     Active Substance: ASPIRIN
  15. IRON [Concomitant]
     Active Substance: IRON
  16. OCUVITE [Concomitant]
     Active Substance: VITAMINS
  17. ZINC [Concomitant]
     Active Substance: ZINC
  18. OMEGA 3 [Concomitant]
     Active Substance: CAPSAICIN
  19. VITAMIN C [Concomitant]
     Active Substance: ASCORBIC ACID
  20. SILENCIL [Concomitant]

REACTIONS (4)
  - Breast cancer [Recovered/Resolved]
  - Intentional device misuse [Unknown]
  - Wrong technique in device usage process [Unknown]
  - Device leakage [Unknown]

NARRATIVE: CASE EVENT DATE: 20220724
